FAERS Safety Report 16693421 (Version 2)
Quarter: 2019Q3

REPORT INFORMATION
  Report Type: Spontaneous
  Country: DE (occurrence: DE)
  Receive Date: 20190812
  Receipt Date: 20190816
  Transmission Date: 20191004
  Serious: Yes (Life-Threatening, Hospitalization, Other)
  Sender: FDA-Public Use
  Company Number: DE-GILEAD-2019-0422818

PATIENT
  Age: 45 Year
  Sex: Male
  Weight: 76 kg

DRUGS (7)
  1. EPCLUSA [Suspect]
     Active Substance: SOFOSBUVIR\VELPATASVIR
     Dosage: UNK UNK, QD
     Route: 065
     Dates: start: 20181018
  2. EPCLUSA [Suspect]
     Active Substance: SOFOSBUVIR\VELPATASVIR
     Dosage: UNK UNK, QD
     Route: 065
     Dates: start: 20180831, end: 20181015
  3. RIBAVIRIN. [Suspect]
     Active Substance: RIBAVIRIN
     Indication: CHRONIC HEPATITIS C
     Dosage: UNK (WEIGHT ADAPTED)
     Route: 048
     Dates: end: 20180827
  4. RIBAVIRIN. [Suspect]
     Active Substance: RIBAVIRIN
     Dosage: UNK (WEIGHT ADAPTED)
     Route: 048
     Dates: start: 20181018
  5. EPCLUSA [Suspect]
     Active Substance: SOFOSBUVIR\VELPATASVIR
     Indication: CHRONIC HEPATITIS C
     Dosage: UNK UNK, QD
     Route: 048
     Dates: end: 20180827
  6. POLAMIDON [Concomitant]
     Active Substance: LEVOMETHADONE
  7. RIBAVIRIN. [Suspect]
     Active Substance: RIBAVIRIN
     Dosage: UNK (WEIGHT ADAPTED)
     Route: 048
     Dates: start: 20180831, end: 20181015

REACTIONS (3)
  - Hepatitis C [Unknown]
  - Drug ineffective [Unknown]
  - Hepatic encephalopathy [Recovered/Resolved]
